FAERS Safety Report 24047968 (Version 1)
Quarter: 2024Q3

REPORT INFORMATION
  Report Type: Spontaneous
  Country: US (occurrence: US)
  Receive Date: 20240703
  Receipt Date: 20240703
  Transmission Date: 20241016
  Serious: Yes (Hospitalization)
  Sender: MERCK
  Company Number: US-009507513-2406USA006670

PATIENT
  Sex: Female
  Weight: 81.6 kg

DRUGS (22)
  1. WINREVAIR [Suspect]
     Active Substance: SOTATERCEPT-CSRK
     Dosage: UNK
     Dates: start: 2024
  2. REMODULIN [Suspect]
     Active Substance: TREPROSTINIL
     Indication: Pulmonary arterial hypertension
     Dosage: CONCENTRATION 5 MG/ML; 0.035 UG/KG CONTINUOUS VIA INTRAVENOUS (IV) ROUTE
     Route: 042
     Dates: start: 202308
  3. REMODULIN [Suspect]
     Active Substance: TREPROSTINIL
     Dosage: CONCENTRATION 5 MG/ML; 0.0364 UG/KG CONTINUOUS VIA IV ROUTE
     Route: 042
  4. REMODULIN [Suspect]
     Active Substance: TREPROSTINIL
     Dosage: CONCENTRATION 5 MG/ML; 0.0381 UG/KG CONTINUOUS VIA IV ROUTE
     Route: 042
     Dates: start: 20240308
  5. OPSUMIT [Concomitant]
     Active Substance: MACITENTAN
     Dosage: UNK
  6. VITAMIN B12 [Concomitant]
     Active Substance: CYANOCOBALAMIN
     Dosage: UNK
  7. FUROSEMIDE [Concomitant]
     Active Substance: FUROSEMIDE
     Dosage: UNK
  8. XARELTO [Concomitant]
     Active Substance: RIVAROXABAN
     Dosage: UNK
  9. SODIUM CHLORIDE [Concomitant]
     Active Substance: SODIUM CHLORIDE
     Dosage: UNK
  10. MAGNESIUM OXIDE [Concomitant]
     Active Substance: MAGNESIUM OXIDE
     Dosage: UNK
  11. VITAMIN D3 [Concomitant]
     Active Substance: CHOLECALCIFEROL
     Dosage: UNK
  12. TADALAFIL [Concomitant]
     Active Substance: TADALAFIL
     Dosage: UNK
  13. ALBUTEROL SULFATE [Concomitant]
     Active Substance: ALBUTEROL SULFATE
     Dosage: UNK
  14. FLUTICASONE PROPIONATE [Concomitant]
     Active Substance: FLUTICASONE PROPIONATE
     Dosage: UNK
  15. ARIPIPRAZOLE [Concomitant]
     Active Substance: ARIPIPRAZOLE
     Dosage: UNK
  16. OXYGEN [Concomitant]
     Active Substance: OXYGEN
     Dosage: UNK
  17. MONTELUKAST SODIUM [Concomitant]
     Active Substance: MONTELUKAST SODIUM
     Dosage: UNK
  18. SPIRONOLACTONE [Concomitant]
     Active Substance: SPIRONOLACTONE
     Dosage: UNK
  19. DIGOXIN [Concomitant]
     Active Substance: DIGOXIN
     Dosage: UNK
  20. PAROXETINE HYDROCHLORIDE [Concomitant]
     Active Substance: PAROXETINE HYDROCHLORIDE\PAROXETINE HYDROCHLORIDE ANHYDROUS
     Dosage: UNK
  21. LAMOTRIGINE [Concomitant]
     Active Substance: LAMOTRIGINE
     Dosage: UNK
  22. HERBALS\PLANTAGO OVATA LEAF [Concomitant]
     Active Substance: HERBALS\PLANTAGO OVATA LEAF
     Dosage: UNK

REACTIONS (6)
  - Fatigue [Recovered/Resolved]
  - Feeling abnormal [Recovering/Resolving]
  - Dyspnoea [Recovering/Resolving]
  - Injection site discharge [Unknown]
  - Injection site pain [Unknown]
  - Headache [Recovered/Resolved]

NARRATIVE: CASE EVENT DATE: 20240101
